FAERS Safety Report 9787595 (Version 2)
Quarter: 2014Q1

REPORT INFORMATION
  Report Type: Spontaneous
  Country: US (occurrence: None)
  Receive Date: 20131226
  Receipt Date: 20140130
  Transmission Date: 20141002
  Serious: Yes (Hospitalization)
  Sender: FDA-Public Use
  Company Number: FK201305469

PATIENT
  Age: 1 Year
  Sex: Male

DRUGS (2)
  1. FOLIC ACID [Suspect]
     Indication: SICKLE CELL ANAEMIA
     Route: 048
  2. PENICILLIN (BENZYLPENICILLIN) [Concomitant]

REACTIONS (5)
  - Vomiting [None]
  - Diarrhoea [None]
  - General physical condition abnormal [None]
  - Pyrexia [None]
  - Off label use [None]
